FAERS Safety Report 12679669 (Version 14)
Quarter: 2019Q3

REPORT INFORMATION
  Report Type: Spontaneous
  Country: US (occurrence: US)
  Receive Date: 20160824
  Receipt Date: 20190924
  Transmission Date: 20191004
  Serious: Yes (Hospitalization, Other)
  Sender: FDA-Public Use
  Company Number: US-PFIZER INC-2016396435

PATIENT
  Age: 55 Year
  Sex: Male
  Weight: 68.27 kg

DRUGS (27)
  1. LYRICA [Suspect]
     Active Substance: PREGABALIN
     Indication: PAIN
     Dosage: 75MG, 2X/DAY (ONE CAPSULE IN THE MORNING AND ONE CAPSULE IN THE EVENING)
     Route: 048
     Dates: start: 201607, end: 20160731
  2. CYMBALTA [Concomitant]
     Active Substance: DULOXETINE HYDROCHLORIDE
     Dosage: 60 MG, UNK (MORNING: 1 CAPSULE, EVENING: 6-7 PM)
     Route: 048
  3. LYRICA [Suspect]
     Active Substance: PREGABALIN
     Dosage: 75 MG, 2X/DAY
     Route: 048
     Dates: start: 201608
  4. OXYCODONE [Concomitant]
     Active Substance: OXYCODONE
     Indication: PAIN
     Dosage: 5 MG, AS NEEDED (2 PILLS EVERY 4-6 HOURS AS NEEDED)
  5. LYRICA [Suspect]
     Active Substance: PREGABALIN
     Indication: NEURALGIA
     Dosage: UNK
     Route: 048
     Dates: start: 201605
  6. MORPHINE SULPHATE [Concomitant]
     Active Substance: MORPHINE SULFATE
     Dosage: 100 MG, 2X/DAY
  7. LYRICA [Suspect]
     Active Substance: PREGABALIN
     Dosage: 75 MG, 2X/DAY (1 CAPSULE 8 AM, 1 CAPSULE WITH DINNER)
     Route: 048
  8. LYRICA [Suspect]
     Active Substance: PREGABALIN
     Dosage: 150 MG, 2X/DAY
     Route: 048
  9. CYMBALTA [Concomitant]
     Active Substance: DULOXETINE HYDROCHLORIDE
     Indication: MUSCULOSKELETAL PAIN
     Dosage: 30 MG, 1X/DAY
     Route: 048
  10. ROXICODONE [Concomitant]
     Active Substance: OXYCODONE HYDROCHLORIDE
     Indication: PAIN
     Dosage: 10 MG, AS NEEDED (EVERY 4-6 HOURS, MORNING: AS NEEDED; AFTERNOON: 2-4 TAB PER DAY)
     Route: 048
  11. PROBIOTICA [Concomitant]
     Active Substance: PROBIOTICS NOS
     Dosage: 1 DF, UNK
  12. DULOXETINE. [Concomitant]
     Active Substance: DULOXETINE
     Dosage: UNK
  13. ONDANSETRON [Concomitant]
     Active Substance: ONDANSETRON
     Dosage: UNK
  14. CREON [Concomitant]
     Active Substance: PANCRELIPASE AMYLASE\PANCRELIPASE LIPASE\PANCRELIPASE PROTEASE
     Dosage: 36000 IU, 3X/DAY
     Route: 048
  15. DERMOTIC [Concomitant]
     Active Substance: FLUOCINOLONE ACETONIDE
     Dosage: 0.03 %, 2X/DAY
  16. ZOFRAN [Concomitant]
     Active Substance: ONDANSETRON HYDROCHLORIDE
     Indication: NAUSEA
     Dosage: 8 MG, AS NEEDED (EVERY 8 HOURS AS NEEDED; AFTERNOON: AS NEEDED.)
     Route: 048
  17. TRAZODONE [Concomitant]
     Active Substance: TRAZODONE HYDROCHLORIDE
     Dosage: UNK
  18. LYRICA [Suspect]
     Active Substance: PREGABALIN
     Dosage: 150 MG, 2X/DAY (1 CAPSULE 8 AM, 1 CAPSULE WITH DINNER)
     Route: 048
     Dates: end: 20180721
  19. ATIVAN [Concomitant]
     Active Substance: LORAZEPAM
     Dosage: 1 MG, UNK
  20. PROTONIX [Concomitant]
     Active Substance: PANTOPRAZOLE SODIUM
     Indication: ABDOMINAL DISCOMFORT
     Dosage: 40 MG, 1X/DAY (EVENING: 1 TABLET AFTER DINNER)
     Route: 048
  21. LYRICA [Suspect]
     Active Substance: PREGABALIN
     Indication: ABDOMINAL PAIN UPPER
     Dosage: 75 MG, 2X/DAY
     Route: 048
     Dates: start: 201601
  22. WARFARIN [Concomitant]
     Active Substance: WARFARIN
     Indication: COAGULOPATHY
     Dosage: UNK
  23. OXYCONTIN [Concomitant]
     Active Substance: OXYCODONE HYDROCHLORIDE
     Indication: ABDOMINAL PAIN UPPER
     Dosage: 80 MG, 2X/DAY
     Route: 048
     Dates: start: 201306
  24. OXYCONTIN [Concomitant]
     Active Substance: OXYCODONE HYDROCHLORIDE
     Dosage: 60 MG, 2X/DAY
     Route: 048
  25. DESYREL [Concomitant]
     Active Substance: TRAZODONE HYDROCHLORIDE
     Dosage: 50 MG, 1X/DAY
     Route: 048
  26. MORPHINE [Concomitant]
     Active Substance: MORPHINE
     Indication: PAIN
     Dosage: 100 MG, UNK
  27. PANTOPRAZOLE [Concomitant]
     Active Substance: PANTOPRAZOLE
     Indication: FLATULENCE
     Dosage: 40 MG, UNK

REACTIONS (8)
  - Fall [Not Recovered/Not Resolved]
  - Hot flush [Recovered/Resolved]
  - Thinking abnormal [Recovered/Resolved]
  - Hip fracture [Not Recovered/Not Resolved]
  - Stress [Recovered/Resolved]
  - Malaise [Recovered/Resolved]
  - Dermatitis [Unknown]
  - Feeling cold [Unknown]

NARRATIVE: CASE EVENT DATE: 20170127
